FAERS Safety Report 6886922-0 (Version None)
Quarter: 2010Q3

REPORT INFORMATION
  Report Type: 
  Country: None (occurrence: None)
  Receive Date: 20100730
  Receipt Date: 20100727
  Transmission Date: 20110219
  Serious: Yes (Life-Threatening)
  Sender: FDA-Public Use
  Company Number: JP-BAYER-200913976BYL

PATIENT
  Age: 61 Year
  Sex: Male
  Weight: 72 kg

DRUGS (15)
  1. NEXAVAR [Suspect]
     Indication: HEPATIC NEOPLASM MALIGNANT
     Dosage: TOTAL DAILY DOSE: 800 MG  UNIT DOSE: 200 MG
     Route: 048
     Dates: start: 20090915, end: 20090917
  2. NEXAVAR [Suspect]
     Dosage: UNIT DOSE: 200 MG
     Route: 048
     Dates: start: 20090924, end: 20091016
  3. RABEPRAZOLE SODIUM [Concomitant]
     Dosage: SINCE BEFORE ADMINISTRATION
     Route: 048
     Dates: end: 20091016
  4. SHAKUYAKU-KANZO-TO [Concomitant]
     Dosage: SINCE BEFORE ADMINISTRATION
     Route: 048
     Dates: end: 20091016
  5. GLYBURIDE [Concomitant]
     Dosage: SINCE BEFORE ADMINISTRATION
     Route: 048
     Dates: end: 20091016
  6. LENDORMIN [Concomitant]
     Dosage: SINCE BEFORE ADMINISTRATION
     Route: 048
     Dates: end: 20090925
  7. URSO 250 [Concomitant]
     Dosage: SINCE BEFORE ADMINISTRATION
     Route: 048
     Dates: end: 20091016
  8. LACTULOSE [Concomitant]
     Dosage: SINCE BEFORE ADMINISTRATION
     Route: 048
     Dates: end: 20090925
  9. AMINOLEBAN EN [Concomitant]
     Dosage: SINCE BEFORE ADMINISTRATION
     Route: 048
     Dates: end: 20091016
  10. PROMAC [Concomitant]
     Route: 048
     Dates: start: 20090101, end: 20091016
  11. FINIBAX [Concomitant]
     Dosage: SINCE BEFORE ADMINISTRATION
     Route: 042
     Dates: end: 20090928
  12. FINIBAX [Concomitant]
     Route: 042
     Dates: start: 20090929, end: 20091002
  13. CIPROXAN-I.V. [Concomitant]
     Route: 041
     Dates: start: 20091003, end: 20091009
  14. LASIX [Concomitant]
     Route: 048
     Dates: start: 20091006, end: 20091013
  15. ALDACTONE [Concomitant]
     Dosage: SINCE BEFORE ADMINISTRATION
     Route: 048
     Dates: end: 20091016

REACTIONS (5)
  - ASCITES [None]
  - INSOMNIA [None]
  - LIVER ABSCESS [None]
  - OESOPHAGEAL VARICES HAEMORRHAGE [None]
  - PYREXIA [None]
